FAERS Safety Report 4579128-1 (Version None)
Quarter: 2005Q1

REPORT INFORMATION
  Report Type: 
  Country: None (occurrence: None)
  Receive Date: 20050121
  Receipt Date: 20040421
  Transmission Date: 20050727
  Serious: Yes (Hospitalization)
  Sender: FDA-Public Use
  Company Number: STA-AE-04-MTX-167

PATIENT
  Age: 56 Year
  Sex: Female

DRUGS (2)
  1. METHOTREXATE [Suspect]
     Indication: RHEUMATOID ARTHRITIS
     Dosage: 15 MG 1X PER 1 WK, ORAL
     Route: 048
     Dates: start: 19980610
  2. PLAQUENIL [Suspect]
     Dosage: TWICE DAILY, ORAL
     Route: 048
     Dates: start: 19920915

REACTIONS (1)
  - PNEUMONIA [None]
